FAERS Safety Report 5596639-0 (Version None)
Quarter: 2008Q1

REPORT INFORMATION
  Report Type: 
  Country: None (occurrence: None)
  Receive Date: 20080118
  Receipt Date: 20080109
  Transmission Date: 20080703
  Serious: Yes (Death)
  Sender: FDA-Public Use
  Company Number: US-PFIZER INC-2008002820

PATIENT
  Age: 24 Year
  Sex: Female

DRUGS (5)
  1. ALPRAZOLAM [Suspect]
  2. HYDROCODONE [Suspect]
  3. OXYCODONE [Suspect]
  4. AMITRIPTYLINE HCL [Suspect]
  5. CITALOPRAM [Suspect]

REACTIONS (4)
  - CARDIAC ARREST [None]
  - DEATH [None]
  - INTENTIONAL DRUG MISUSE [None]
  - RESPIRATORY ARREST [None]
